FAERS Safety Report 5938823-X (Version None)
Quarter: 2008Q4

REPORT INFORMATION
  Report Type: 
  Country: None (occurrence: None)
  Receive Date: 20081103
  Receipt Date: 20081027
  Transmission Date: 20090506
  Serious: Yes (Other)
  Sender: FDA-Public Use
  Company Number: US-BAYER-200835201NA

PATIENT
  Age: 61 Year
  Sex: Female
  Weight: 48 kg

DRUGS (2)
  1. NEXAVAR [Suspect]
     Indication: ANAPLASTIC ASTROCYTOMA
     Dosage: TOTAL DAILY DOSE: 400 MG  UNIT DOSE: 200 MG
     Route: 048
     Dates: start: 20080518, end: 20080625
  2. TEMOZOLOMIDE [Suspect]
     Indication: ANAPLASTIC ASTROCYTOMA
     Route: 048
     Dates: start: 20080518, end: 20080617

REACTIONS (1)
  - PLATELET COUNT DECREASED [None]
